FAERS Safety Report 5729932-9 (Version None)
Quarter: 2008Q2

REPORT INFORMATION
  Report Type: 
  Country: None (occurrence: None)
  Receive Date: 20080502
  Receipt Date: 20080421
  Transmission Date: 20081010
  Serious: Yes (Other)
  Sender: FDA-Public Use
  Company Number: TRP_05656_2008

PATIENT
  Age: 57 Year
  Sex: Female
  Weight: 67.1324 kg

DRUGS (2)
  1. RIBASPHERE [Suspect]
     Indication: HEPATITIS C
     Dosage: (DF ORAL)
     Route: 048
     Dates: start: 20070926, end: 20080305
  2. PEG-INTRON [Suspect]
     Indication: HEPATITIS C
     Dosage: (DF SUBCUTANEOUS)
     Route: 058
     Dates: start: 20070926, end: 20080305

REACTIONS (6)
  - ALOPECIA [None]
  - ANAEMIA [None]
  - DIZZINESS [None]
  - HYPERTHYROIDISM [None]
  - TINNITUS [None]
  - WEIGHT DECREASED [None]
